FAERS Safety Report 7605540-X (Version None)
Quarter: 2011Q3

REPORT INFORMATION
  Report Type: 
  Country: None (occurrence: None)
  Receive Date: 20110713
  Receipt Date: 20110707
  Transmission Date: 20111222
  Serious: Yes (Death)
  Sender: FDA-Public Use
  Company Number: AR-AMGEN-ARGCT2011018036

PATIENT
  Age: 85 Year
  Sex: Female

DRUGS (8)
  1. PLACEBO [Suspect]
     Indication: CARDIAC FAILURE
     Dates: start: 20071109, end: 20101217
  2. METFORMIN HCL [Concomitant]
  3. FERROUS SULFATE TAB [Concomitant]
  4. ASPIRIN [Concomitant]
     Dosage: 100 MG, QD
  5. BLINDED DARBEPOETIN ALFA [Suspect]
     Indication: CARDIAC FAILURE
     Dates: start: 20071109, end: 20101217
  6. LOSARTAN POTASSIUM [Concomitant]
     Dosage: 25 MG, QD
  7. SIMVASTATIN [Concomitant]
     Dosage: 20 MG, QD
  8. CARVEDILOL [Concomitant]
     Dosage: 25 MG, QD

REACTIONS (1)
  - PANCREATIC CARCINOMA [None]
